FAERS Safety Report 10175513 (Version 2)
Quarter: 2014Q2

REPORT INFORMATION
  Report Type: Report from Study
  Country: DE (occurrence: DE)
  Receive Date: 20140516
  Receipt Date: 20140527
  Transmission Date: 20141212
  Serious: Yes (Other)
  Sender: FDA-Public Use
  Company Number: DE-ROCHE-1399489

PATIENT
  Age: 81 Year
  Sex: Male

DRUGS (3)
  1. ALTEPLASE [Suspect]
     Indication: ISCHAEMIC STROKE
     Route: 042
  2. ASPIRIN [Suspect]
     Indication: ANTICOAGULANT THERAPY
     Route: 065
  3. SIMVASTATIN [Concomitant]
     Route: 065

REACTIONS (3)
  - Haemorrhage intracranial [Unknown]
  - Hemianopia [Unknown]
  - Partial seizures [Unknown]
